FAERS Safety Report 6141440-2 (Version None)
Quarter: 2009Q2

REPORT INFORMATION
  Report Type: 
  Country: None (occurrence: None)
  Receive Date: 20090402
  Receipt Date: 20090330
  Transmission Date: 20091009
  Serious: Yes (Hospitalization)
  Sender: FDA-Public Use
  Company Number: US-MERCK-0903USA00047

PATIENT
  Age: 70 Year
  Sex: Male

DRUGS (5)
  1. VYTORIN [Suspect]
     Indication: HYPERCHOLESTEROLAEMIA
     Route: 048
     Dates: start: 20070701
  2. VYTORIN [Suspect]
     Route: 048
     Dates: end: 20081201
  3. ALTACE [Concomitant]
     Route: 065
  4. COREG [Concomitant]
     Route: 065
  5. CLONIDINE [Concomitant]
     Route: 065

REACTIONS (4)
  - CHEST PAIN [None]
  - DRUG INEFFECTIVE [None]
  - MUSCULOSKELETAL CHEST PAIN [None]
  - MYALGIA [None]
